FAERS Safety Report 16218499 (Version 1)
Quarter: 2019Q2

REPORT INFORMATION
  Report Type: Report from Study
  Country: GB (occurrence: GB)
  Receive Date: 20190419
  Receipt Date: 20190419
  Transmission Date: 20190711
  Serious: Yes (Other)
  Sender: FDA-Public Use
  Company Number: PHHY2019GB043650

PATIENT
  Sex: Female

DRUGS (1)
  1. COSENTYX [Suspect]
     Active Substance: SECUKINUMAB
     Indication: PSORIATIC ARTHROPATHY
     Dosage: 150 MG, QMO
     Route: 058
     Dates: start: 20171229

REACTIONS (6)
  - Malaise [Unknown]
  - Gout [Unknown]
  - Accidental exposure to product [Unknown]
  - Muscular weakness [Unknown]
  - Ill-defined disorder [Unknown]
  - Incorrect dose administered [Unknown]
